FAERS Safety Report 16999272 (Version 1)
Quarter: 2019Q4

REPORT INFORMATION
  Report Type: Spontaneous
  Country: US (occurrence: US)
  Receive Date: 20191105
  Receipt Date: 20191105
  Transmission Date: 20200122
  Serious: No
  Sender: FDA-Public Use
  Company Number: US-RADIUS HEALTH INC.-2019US003580

PATIENT
  Sex: Female

DRUGS (1)
  1. TYMLOS [Suspect]
     Active Substance: ABALOPARATIDE
     Indication: OSTEOPOROSIS POSTMENOPAUSAL
     Dosage: 80MCG/QD
     Route: 058
     Dates: start: 20190923, end: 20191001

REACTIONS (5)
  - Fatigue [Not Recovered/Not Resolved]
  - Flushing [Unknown]
  - Depressed mood [Not Recovered/Not Resolved]
  - Heart rate increased [Unknown]
  - Pain in jaw [Unknown]
